FAERS Safety Report 5008877-6 (Version None)
Quarter: 2006Q2

REPORT INFORMATION
  Report Type: 
  Country: None (occurrence: None)
  Receive Date: 20060518
  Receipt Date: 20060515
  Transmission Date: 20061013
  Serious: Yes (Other)
  Sender: FDA-Public Use
  Company Number: 007468

PATIENT
  Age: 57 Year
  Sex: Female

DRUGS (3)
  1. MEDROXYPROGESTERONE [Suspect]
     Dosage: UNK, ORAL
     Route: 048
     Dates: start: 19900101, end: 20030101
  2. ESTRATEST [Suspect]
     Dosage: UNK, ORAL
     Route: 048
     Dates: start: 19900101, end: 20030101
  3. PROVERA [Suspect]
     Dosage: UNK, ORAL
     Route: 048
     Dates: start: 19900101, end: 20030101

REACTIONS (4)
  - BREAST CANCER FEMALE [None]
  - BREAST CANCER IN SITU [None]
  - OESTROGEN RECEPTOR ASSAY POSITIVE [None]
  - PROGESTERONE RECEPTOR ASSAY POSITIVE [None]
